FAERS Safety Report 9079776 (Version 1)
Quarter: 2013Q1

REPORT INFORMATION
  Report Type: Spontaneous
  Country: US (occurrence: US)
  Receive Date: 20130130
  Receipt Date: 20130130
  Transmission Date: 20140127
  Serious: No
  Sender: FDA-Public Use
  Company Number: US-FOUGERA-2012FO001076

PATIENT
  Age: 51 Year
  Sex: Male
  Weight: 90.72 kg

DRUGS (4)
  1. APEXICON E [Suspect]
     Indication: RASH
     Route: 061
  2. APEXICON E [Suspect]
     Indication: RASH
     Route: 061
  3. APEXICON E [Suspect]
     Indication: RASH
     Dates: start: 2007
  4. PREDNISONE [Concomitant]
     Indication: PRODUCT USED FOR UNKNOWN INDICATION
     Route: 048

REACTIONS (1)
  - Drug ineffective [Not Recovered/Not Resolved]
